FAERS Safety Report 21133177 (Version 1)
Quarter: 2022Q3

REPORT INFORMATION
  Report Type: Spontaneous
  Country: US (occurrence: None)
  Receive Date: 20220726
  Receipt Date: 20220726
  Transmission Date: 20221027
  Serious: Yes (Other)
  Sender: FDA-Public Use
  Company Number: None

PATIENT
  Age: 61 Year
  Sex: Female
  Weight: 99 kg

DRUGS (2)
  1. PREDNISONE [Suspect]
     Active Substance: PREDNISONE
     Indication: Guttate psoriasis
     Dates: start: 20220722
  2. BIOTIN [Concomitant]
     Active Substance: BIOTIN

REACTIONS (5)
  - Nausea [None]
  - Fatigue [None]
  - Malaise [None]
  - Paraesthesia oral [None]
  - Temperature regulation disorder [None]

NARRATIVE: CASE EVENT DATE: 20220726
